FAERS Safety Report 7087980-3 (Version None)
Quarter: 2010Q4

REPORT INFORMATION
  Report Type: 
  Country: None (occurrence: None)
  Receive Date: 20101001
  Receipt Date: 20100609
  Transmission Date: 20110411
  Serious: No
  Sender: FDA-Public Use
  Company Number: 1000014383

PATIENT

DRUGS (2)
  1. BYSTOLIC [Suspect]
  2. NORVASC [Concomitant]

REACTIONS (1)
  - FLUSHING [None]
